FAERS Safety Report 13498001 (Version 3)
Quarter: 2017Q2

REPORT INFORMATION
  Report Type: Report from Study
  Country: US (occurrence: US)
  Receive Date: 20170428
  Receipt Date: 20170519
  Transmission Date: 20170830
  Serious: Yes (Hospitalization, Other)
  Sender: FDA-Public Use
  Company Number: US-BRISTOL-MYERS SQUIBB COMPANY-BMS-2017-035179

PATIENT
  Age: 70 Year
  Sex: Male

DRUGS (1)
  1. NIVOLUMAB [Suspect]
     Active Substance: NIVOLUMAB
     Indication: NEUROENDOCRINE CARCINOMA OF THE SKIN
     Dosage: 0 UNK, UNK
     Route: 065
     Dates: start: 20170323

REACTIONS (10)
  - Vasogenic cerebral oedema [Recovered/Resolved]
  - Haemorrhagic tumour necrosis [Recovered/Resolved]
  - Gait disturbance [Recovered/Resolved]
  - Bradycardia [Recovered/Resolved]
  - Balance disorder [Recovered/Resolved]
  - Mental impairment [Recovered/Resolved]
  - Visual impairment [Recovered/Resolved]
  - Haematoma [Unknown]
  - Confusional state [Recovered/Resolved]
  - Metastases to central nervous system [Recovered/Resolved]

NARRATIVE: CASE EVENT DATE: 20170328
